FAERS Safety Report 13120979 (Version 2)
Quarter: 2017Q1

REPORT INFORMATION
  Report Type: Spontaneous
  Country: FR (occurrence: FR)
  Receive Date: 20170117
  Receipt Date: 20170120
  Transmission Date: 20170428
  Serious: Yes (Other)
  Sender: FDA-Public Use
  Company Number: FR-009507513-1701FRA004403

PATIENT
  Age: 47 Year
  Sex: Male

DRUGS (2)
  1. EMEND [Suspect]
     Active Substance: APREPITANT
     Dosage: UNK, OPENING THE CAPSULES AND TAKING THEM VIA GASTRIC TUBE
     Dates: start: 20170109
  2. EMEND [Suspect]
     Active Substance: APREPITANT
     Dosage: UNKNOWN
     Route: 048
     Dates: start: 201612

REACTIONS (4)
  - Medication error [Unknown]
  - Aptyalism [Unknown]
  - Off label use [Unknown]
  - Dysphagia [Unknown]

NARRATIVE: CASE EVENT DATE: 20170109
